FAERS Safety Report 4878019-6 (Version None)
Quarter: 2006Q1

REPORT INFORMATION
  Report Type: 
  Country: None (occurrence: None)
  Receive Date: 20060111
  Receipt Date: 20060105
  Transmission Date: 20060701
  Serious: Yes (Other)
  Sender: FDA-Public Use
  Company Number: 2006UW00225

PATIENT
  Age: 26 Year
  Sex: Male

DRUGS (1)
  1. DIPRIVAN [Suspect]
     Indication: GENERAL ANAESTHESIA
     Route: 042

REACTIONS (2)
  - BLOOD DISORDER [None]
  - BLOOD TRIGLYCERIDES INCREASED [None]
